FAERS Safety Report 21319101 (Version 1)
Quarter: 2022Q3

REPORT INFORMATION
  Report Type: Spontaneous
  Country: US (occurrence: US)
  Receive Date: 20220911
  Receipt Date: 20220911
  Transmission Date: 20221027
  Serious: No
  Sender: FDA-Public Use
  Company Number: US-SA-SAC20220228000798

PATIENT
  Age: 57 Year
  Sex: Female

DRUGS (1)
  1. DUPIXENT [Suspect]
     Active Substance: DUPILUMAB
     Dosage: 300 MG
     Route: 058
     Dates: start: 202109

REACTIONS (6)
  - Pain [Unknown]
  - Injection site pain [Unknown]
  - Dermatitis atopic [Unknown]
  - Dry skin [Unknown]
  - Dermatitis [Unknown]
  - Therapeutic response shortened [Unknown]
